FAERS Safety Report 24916121 (Version 2)
Quarter: 2025Q1

REPORT INFORMATION
  Report Type: Spontaneous
  Country: SE (occurrence: SE)
  Receive Date: 20250203
  Receipt Date: 20250324
  Transmission Date: 20250409
  Serious: Yes (Other)
  Sender: ABBVIE
  Company Number: SE-ABBVIE-6107628

PATIENT
  Sex: Male

DRUGS (1)
  1. RINVOQ [Suspect]
     Active Substance: UPADACITINIB
     Indication: Psoriatic arthropathy
     Route: 048

REACTIONS (5)
  - Colitis [Unknown]
  - Pulmonary embolism [Unknown]
  - Pyrexia [Unknown]
  - Paraesthesia [Unknown]
  - Anal abscess [Unknown]
